FAERS Safety Report 5119485-0 (Version None)
Quarter: 2006Q3

REPORT INFORMATION
  Report Type: 
  Country: None (occurrence: None)
  Receive Date: 20060928
  Receipt Date: 20060919
  Transmission Date: 20061208
  Serious: Yes (Life-Threatening, Hospitalization)
  Sender: FDA-Public Use
  Company Number: US-2006-017396

PATIENT
  Age: 65 Year
  Sex: Female
  Weight: 113.4 kg

DRUGS (1)
  1. ULTRAVIST (PHARMACY BULK) [Suspect]
     Indication: ARTERIOGRAM CORONARY
     Dosage: SEE IMAGE, INTRAVENOUS
     Route: 042
     Dates: start: 20060615, end: 20060615

REACTIONS (10)
  - ANAEMIA [None]
  - ANAPHYLACTIC SHOCK [None]
  - CHEST DISCOMFORT [None]
  - HYPERGLYCAEMIA [None]
  - INTUBATION COMPLICATION [None]
  - LEUKOCYTOSIS [None]
  - PHARYNGOLARYNGEAL ABSCESS [None]
  - POST PROCEDURAL COMPLICATION [None]
  - RESPIRATORY ARREST [None]
  - TROPONIN INCREASED [None]
